FAERS Safety Report 5418160-2 (Version None)
Quarter: 2007Q3

REPORT INFORMATION
  Report Type: 
  Country: None (occurrence: None)
  Receive Date: 20070817
  Receipt Date: 20070807
  Transmission Date: 20080115
  Serious: Yes (Hospitalization)
  Sender: FDA-Public Use
  Company Number: US-ELI_LILLY_AND_COMPANY-US200708001492

PATIENT
  Age: 74 Year
  Sex: Female
  Weight: 81.632 kg

DRUGS (4)
  1. BYETTA [Suspect]
     Indication: TYPE 2 DIABETES MELLITUS
     Dosage: 5 UG, 2/D
     Route: 058
     Dates: start: 20060301, end: 20060401
  2. BYETTA [Suspect]
     Dosage: 10 UG, 2/D
     Route: 058
     Dates: start: 20060401
  3. LANTUS [Concomitant]
     Indication: DIABETES MELLITUS
     Dosage: 10 U, DAILY (1/D)
     Route: 058
  4. CORTISONE ACETATE TAB [Concomitant]
     Indication: ARTHRITIS
     Dosage: UNK, UNKNOWN

REACTIONS (4)
  - BLOOD GLUCOSE INCREASED [None]
  - DECREASED APPETITE [None]
  - DEVICE BREAKAGE [None]
  - WEIGHT DECREASED [None]
